FAERS Safety Report 7664661-6 (Version None)
Quarter: 2011Q3

REPORT INFORMATION
  Report Type: 
  Country: None (occurrence: None)
  Receive Date: 20110806
  Receipt Date: 20110111
  Transmission Date: 20111222
  Serious: No
  Sender: FDA-Public Use
  Company Number: US-ABBOTT-11P-163-0696411-00

PATIENT
  Sex: Female
  Weight: 52.21 kg

DRUGS (11)
  1. ASPIRIN [Concomitant]
     Indication: FLUSHING
  2. ENALAPRIL MALEATE [Concomitant]
     Indication: PRODUCT USED FOR UNKNOWN INDICATION
  3. LIPITOR [Concomitant]
     Indication: PRODUCT USED FOR UNKNOWN INDICATION
     Dosage: AT BEDTIME
  4. STOOL SOFTENER [Concomitant]
     Indication: PRODUCT USED FOR UNKNOWN INDICATION
     Dosage: AT BEDTIME
  5. NIASPAN [Suspect]
  6. XANAX [Concomitant]
     Indication: PRODUCT USED FOR UNKNOWN INDICATION
     Dosage: AT BEDTIME
  7. NIASPAN [Suspect]
     Indication: HYPERLIPIDAEMIA
     Dosage: AT BEDTIME FOR ABOUT A WEEK
     Dates: start: 20101130, end: 20101201
  8. NIASPAN [Suspect]
     Dosage: FOR LESS THAN A WEEK
     Dates: start: 20101215
  9. METOPROLOL TARTRATE [Concomitant]
     Indication: PRODUCT USED FOR UNKNOWN INDICATION
  10. AMLODIPINE [Concomitant]
     Indication: PRODUCT USED FOR UNKNOWN INDICATION
  11. FISH OIL [Concomitant]
     Indication: PRODUCT USED FOR UNKNOWN INDICATION
     Dosage: IN THE AM

REACTIONS (7)
  - PRURITUS [None]
  - PALPITATIONS [None]
  - INFECTION [None]
  - FEELING HOT [None]
  - PYREXIA [None]
  - RASH [None]
  - SYNCOPE [None]
